FAERS Safety Report 16366440 (Version 1)
Quarter: 2019Q2

REPORT INFORMATION
  Report Type: Spontaneous
  Country: GB (occurrence: GB)
  Receive Date: 20190529
  Receipt Date: 20190529
  Transmission Date: 20190711
  Serious: Yes (Other)
  Sender: FDA-Public Use
  Company Number: GB-TEVA-2019-GB-1056073

PATIENT
  Age: 4 Year
  Sex: Female
  Weight: 22.67 kg

DRUGS (3)
  1. AMOXICILLIN. [Suspect]
     Active Substance: AMOXICILLIN
     Indication: TONSILLITIS
     Route: 048
     Dates: start: 20181012, end: 20181017
  2. IBUPROFEN. [Concomitant]
     Active Substance: IBUPROFEN
  3. CALPOL [Concomitant]
     Active Substance: ACETAMINOPHEN

REACTIONS (1)
  - Sleep terror [Not Recovered/Not Resolved]

NARRATIVE: CASE EVENT DATE: 20181012
